FAERS Safety Report 20831653 (Version 2)
Quarter: 2022Q2

REPORT INFORMATION
  Report Type: Report from Study
  Country: US (occurrence: US)
  Receive Date: 20220516
  Receipt Date: 20220614
  Transmission Date: 20220721
  Serious: Yes (Hospitalization, Other)
  Sender: FDA-Public Use
  Company Number: US-BRISTOL-MYERS SQUIBB COMPANY-2022-037398

PATIENT
  Age: 48 Year
  Sex: Male
  Weight: 70.31 kg

DRUGS (1)
  1. ZEPOSIA [Suspect]
     Active Substance: OZANIMOD HYDROCHLORIDE
     Indication: Colitis ulcerative
     Dosage: DOSE: 0.92 MILLIGRAM, FREQ: DAILY
     Route: 048
     Dates: start: 20220427

REACTIONS (5)
  - Asthenia [Unknown]
  - Weight decreased [Unknown]
  - Back pain [Unknown]
  - Drug ineffective [Unknown]
  - Colitis ulcerative [Unknown]
